FAERS Safety Report 9123457 (Version 1)
Quarter: 2013Q1

REPORT INFORMATION
  Report Type: Spontaneous
  Country: FR (occurrence: FR)
  Receive Date: 20130115
  Receipt Date: 20130115
  Transmission Date: 20140127
  Serious: Yes (Death, Life-Threatening, Hospitalization)
  Sender: FDA-Public Use
  Company Number: FR-BRISTOL-MYERS SQUIBB COMPANY-17275488

PATIENT
  Age: 88 Year
  Sex: Female

DRUGS (8)
  1. COUMADIN TABS [Suspect]
     Route: 048
  2. HUMALOG [Concomitant]
  3. LANTUS [Concomitant]
  4. INEXIUM [Concomitant]
  5. DIFFU-K [Concomitant]
  6. TEMERIT [Concomitant]
  7. LASILIX [Concomitant]
  8. ALLOPURINOL [Concomitant]

REACTIONS (2)
  - Haematoma [Fatal]
  - Fall [Unknown]
